FAERS Safety Report 19280691 (Version 1)
Quarter: 2021Q2

REPORT INFORMATION
  Report Type: Spontaneous
  Country: US (occurrence: US)
  Receive Date: 20210520
  Receipt Date: 20210520
  Transmission Date: 20210717
  Serious: No
  Sender: FDA-Public Use
  Company Number: US-PFIZER INC-2021018604

PATIENT
  Age: 72 Year
  Sex: Female

DRUGS (1)
  1. SOMAVERT [Suspect]
     Active Substance: PEGVISOMANT
     Dosage: 10 MG, DAILY (10MG 7 WEEK)

REACTIONS (3)
  - Functional gastrointestinal disorder [Unknown]
  - Liver disorder [Unknown]
  - Duodenogastric reflux [Unknown]
